FAERS Safety Report 7440927-X (Version None)
Quarter: 2011Q2

REPORT INFORMATION
  Report Type: 
  Country: None (occurrence: None)
  Receive Date: 20110427
  Receipt Date: 20110415
  Transmission Date: 20111010
  Serious: Yes (Other)
  Sender: FDA-Public Use
  Company Number: PHHY2011AR32372

PATIENT
  Sex: Female

DRUGS (1)
  1. EXELON [Suspect]
     Indication: CEREBRAL DISORDER
     Dosage: PATCH 5
     Route: 062

REACTIONS (5)
  - NERVOUSNESS [None]
  - PANIC ATTACK [None]
  - DIZZINESS [None]
  - HEADACHE [None]
  - NAUSEA [None]
